FAERS Safety Report 19041488 (Version 1)
Quarter: 2021Q1

REPORT INFORMATION
  Report Type: Other
  Country: US (occurrence: US)
  Receive Date: 20210323
  Receipt Date: 20210323
  Transmission Date: 20210420
  Serious: Yes (Other)
  Sender: FDA-Public Use
  Company Number: US-ROCHE-2793148

PATIENT
  Age: 68 Year
  Sex: Female

DRUGS (2)
  1. ACTILYSE [Suspect]
     Active Substance: ALTEPLASE
     Indication: PLEURAL EFFUSION
     Route: 065
  2. DORNASE ALFA. [Suspect]
     Active Substance: DORNASE ALFA
     Indication: PRODUCT USED FOR UNKNOWN INDICATION
     Dosage: FOR THE NEXT 3 DAYS
     Route: 065

REACTIONS (4)
  - Haemothorax [Unknown]
  - Chest pain [Unknown]
  - Respiratory failure [Unknown]
  - Lung disorder [Unknown]
